FAERS Safety Report 4883154-2 (Version None)
Quarter: 2006Q1

REPORT INFORMATION
  Report Type: 
  Country: None (occurrence: None)
  Receive Date: 20060117
  Receipt Date: 20060117
  Transmission Date: 20060701
  Serious: Yes (Death)
  Sender: FDA-Public Use
  Company Number: None

PATIENT
  Sex: Male
  Weight: 93.8946 kg

DRUGS (8)
  1. CEFTRIAXONE [Suspect]
     Indication: PNEUMONIA
     Dosage: 1 GM IV Q 24
     Route: 042
     Dates: start: 20051231
  2. AZITHROMYCIN [Suspect]
     Indication: PNEUMONIA
     Dosage: IV 500MG Q
     Route: 042
     Dates: start: 20051231
  3. GLIPIZIDE [Concomitant]
  4. BENAZEPRIL HCL [Concomitant]
  5. ASPIRIN [Concomitant]
  6. CALCIUM GLUCONATE [Concomitant]
  7. GLUCOSAMINE [Concomitant]
  8. ROCEPHIN [Concomitant]

REACTIONS (2)
  - IDIOPATHIC PULMONARY FIBROSIS [None]
  - THERAPY NON-RESPONDER [None]
